FAERS Safety Report 14906682 (Version 1)
Quarter: 2018Q2

REPORT INFORMATION
  Report Type: Spontaneous
  Country: US (occurrence: US)
  Receive Date: 20180517
  Receipt Date: 20180517
  Transmission Date: 20180711
  Serious: No
  Sender: FDA-Public Use
  Company Number: US-SA-2017SA026118

PATIENT
  Age: 63 Year
  Sex: Male
  Weight: 84.3 kg

DRUGS (3)
  1. BYETTA [Concomitant]
     Active Substance: EXENATIDE
  2. SOLOSTAR [Suspect]
     Active Substance: DEVICE
     Indication: TYPE 2 DIABETES MELLITUS
     Dates: start: 20161015
  3. LANTUS SOLOSTAR [Suspect]
     Active Substance: INSULIN GLARGINE
     Indication: TYPE 2 DIABETES MELLITUS
     Dosage: DOSE:21 UNIT(S)
     Route: 051
     Dates: start: 20161015

REACTIONS (4)
  - Injection site pain [Unknown]
  - Blood glucose increased [Unknown]
  - Device issue [Unknown]
  - Underdose [Unknown]
